FAERS Safety Report 12137400 (Version 2)
Quarter: 2016Q1

REPORT INFORMATION
  Report Type: Report from Study
  Country: GB (occurrence: GB)
  Receive Date: 20160302
  Receipt Date: 20160304
  Transmission Date: 20160526
  Serious: Yes (Other)
  Sender: FDA-Public Use
  Company Number: GB-ABBVIE-16K-167-1571527-00

PATIENT
  Sex: Male

DRUGS (1)
  1. HUMIRA [Suspect]
     Active Substance: ADALIMUMAB
     Indication: PSORIATIC ARTHROPATHY
     Route: 058

REACTIONS (4)
  - Infection [Unknown]
  - Henoch-Schonlein purpura [Not Recovered/Not Resolved]
  - IgA nephropathy [Not Recovered/Not Resolved]
  - Malaise [Unknown]
